FAERS Safety Report 5270295-3 (Version None)
Quarter: 2007Q1

REPORT INFORMATION
  Report Type: 
  Country: None (occurrence: None)
  Receive Date: 20070320
  Receipt Date: 20070308
  Transmission Date: 20070707
  Serious: Yes (Other)
  Sender: FDA-Public Use
  Company Number: FR-PFIZER INC-2007007698

PATIENT
  Sex: Female
  Weight: 55 kg

DRUGS (6)
  1. LYRICA [Suspect]
     Indication: BACK PAIN
     Route: 048
     Dates: start: 20070105, end: 20070201
  2. LYRICA [Suspect]
  3. THIOCOLCHICOSIDE [Concomitant]
     Route: 048
  4. CLONAZEPAM [Concomitant]
     Indication: BACK PAIN
     Route: 048
     Dates: start: 20070105
  5. LEVOTHYROXINE SODIUM [Concomitant]
     Indication: HYPOTHYROIDISM
     Route: 048
  6. CYNOMEL [Concomitant]
     Indication: HYPOTHYROIDISM
     Route: 048

REACTIONS (3)
  - DEPRESSION [None]
  - DISEASE RECURRENCE [None]
  - VERTIGO [None]
